FAERS Safety Report 22267786 (Version 1)
Quarter: 2023Q2

REPORT INFORMATION
  Report Type: Spontaneous
  Country: CH (occurrence: CH)
  Receive Date: 20230430
  Receipt Date: 20230430
  Transmission Date: 20230722
  Serious: Yes (Hospitalization)
  Sender: FDA-Public Use
  Company Number: None

PATIENT
  Age: 64 Year
  Sex: Male
  Weight: 81 kg

DRUGS (8)
  1. INVANZ [Suspect]
     Active Substance: ERTAPENEM SODIUM
     Indication: Klebsiella bacteraemia
     Dosage: 500 MILLIGRAM, QD
     Route: 042
     Dates: start: 20230321, end: 20230327
  2. BUPRENORPHINE HYDROCHLORIDE [Suspect]
     Active Substance: BUPRENORPHINE HYDROCHLORIDE
     Indication: Abdominal pain
     Dosage: 0.2 MG 4X/D
     Route: 048
     Dates: start: 20230312, end: 20230326
  3. ESOMEPRAZOLE MAGNESIUM [Concomitant]
     Active Substance: ESOMEPRAZOLE MAGNESIUM
     Dosage: 40 MG 2X
  4. ASPIRIN [Concomitant]
     Active Substance: ASPIRIN
     Dosage: 100 MG 1X/D
  5. LANTUS SOLOSTAR [Concomitant]
     Active Substance: INSULIN GLARGINE
     Dosage: 11 IU 1X/D
  6. DAFALGAN [Concomitant]
     Active Substance: ACETAMINOPHEN
     Dosage: 500 MG 4X/D
  7. LACTITOL [Concomitant]
     Active Substance: LACTITOL
     Dosage: 667 MG/ML 20 ML 1X/D
  8. HERBALS\HOPS\VALERIAN [Concomitant]
     Active Substance: HERBALS\HOPS\VALERIAN
     Dosage: 500 MG 2X/D IN CASE OF INSOMNIA

REACTIONS (2)
  - Toxic encephalopathy [Recovering/Resolving]
  - Myoclonus [Recovered/Resolved]

NARRATIVE: CASE EVENT DATE: 20230325
